FAERS Safety Report 9848068 (Version 1)
Quarter: 2013Q4

REPORT INFORMATION
  Report Type: Spontaneous
  Country: US (occurrence: None)
  Receive Date: 20131223
  Receipt Date: 20131223
  Transmission Date: 20140711
  Serious: Yes (Other)
  Sender: FDA-Public Use
  Company Number: CABO-13003525

PATIENT
  Age: 70 Year
  Sex: Female

DRUGS (6)
  1. COMETRIQ (CABOZANTINIB) CAPSULE [Suspect]
     Indication: THYROID CANCER
     Route: 048
     Dates: start: 20130406, end: 20130528
  2. SYNTHROID (LEVOTHYROXINE SODIUM) [Concomitant]
  3. GABAPENTIN (GABAPENTIN) [Concomitant]
  4. METOPROLOL (METOPROLOL TARTRATE) [Concomitant]
  5. HYDROCODONE (HYDROCODONE BITARTRATE) [Concomitant]
  6. ASPIRIN (ACETYLSALICYLIC ACID) [Concomitant]

REACTIONS (2)
  - Neck pain [None]
  - Pain in jaw [None]
